FAERS Safety Report 7903846-8 (Version None)
Quarter: 2011Q4

REPORT INFORMATION
  Report Type: 
  Country: None (occurrence: None)
  Receive Date: 20111109
  Receipt Date: 20111031
  Transmission Date: 20120403
  Serious: Yes (Hospitalization, Other)
  Sender: FDA-Public Use
  Company Number: US-BRISTOL-MYERS SQUIBB COMPANY-14703300

PATIENT
  Age: 53 Year
  Sex: Male
  Weight: 84 kg

DRUGS (2)
  1. CISPLATIN [Suspect]
     Indication: HEAD AND NECK CANCER
     Dosage: LAST DOSE 30DEC08
     Dates: start: 20081202
  2. ERBITUX [Suspect]
     Indication: HEAD AND NECK CANCER
     Dosage: LAST DOSE: 20JAN09
     Dates: start: 20081202

REACTIONS (15)
  - DYSPHAGIA [None]
  - HYPOTENSION [None]
  - CONFUSIONAL STATE [None]
  - SKIN INFECTION [None]
  - PAIN [None]
  - LEUKOPENIA [None]
  - HYPOXIA [None]
  - HYPOALBUMINAEMIA [None]
  - STOMATITIS [None]
  - ACTIVATED PARTIAL THROMBOPLASTIN TIME PROLONGED [None]
  - DEHYDRATION [None]
  - NEUTROPHIL COUNT DECREASED [None]
  - LYMPHOCYTE COUNT DECREASED [None]
  - RENAL FAILURE ACUTE [None]
  - PNEUMONITIS [None]
